FAERS Safety Report 7224438-2 (Version None)
Quarter: 2011Q1

REPORT INFORMATION
  Report Type: 
  Country: None (occurrence: None)
  Receive Date: 20110113
  Receipt Date: 20110107
  Transmission Date: 20110831
  Serious: Yes (Hospitalization)
  Sender: FDA-Public Use
  Company Number: CA-JNJFOC-20110101706

PATIENT
  Age: 5 Year
  Sex: Male

DRUGS (1)
  1. CONCERTA [Suspect]
     Indication: ILL-DEFINED DISORDER
     Route: 048

REACTIONS (3)
  - AGGRESSION [None]
  - HALLUCINATION, VISUAL [None]
  - CRYING [None]
